FAERS Safety Report 7497539-1 (Version None)
Quarter: 2011Q2

REPORT INFORMATION
  Report Type: 
  Country: None (occurrence: None)
  Receive Date: 20110523
  Receipt Date: 20110510
  Transmission Date: 20111010
  Serious: Yes (Other)
  Sender: FDA-Public Use
  Company Number: PHHY2011FR41220

PATIENT

DRUGS (1)
  1. EVEROLIMUS [Suspect]
     Indication: RENAL CANCER METASTATIC

REACTIONS (4)
  - ASTHENIA [None]
  - EPISTAXIS [None]
  - OEDEMA PERIPHERAL [None]
  - TOXIC SKIN ERUPTION [None]
